FAERS Safety Report 17425813 (Version 2)
Quarter: 2021Q1

REPORT INFORMATION
  Report Type: Report from Study
  Country: US (occurrence: US)
  Receive Date: 20200217
  Receipt Date: 20210201
  Transmission Date: 20210419
  Serious: Yes (Other)
  Sender: FDA-Public Use
  Company Number: NVSC2020US040990

PATIENT
  Age: 18 Year
  Sex: Female
  Weight: 68.03 kg

DRUGS (2)
  1. GILENYA [Suspect]
     Active Substance: FINGOLIMOD HYDROCHLORIDE
     Indication: MULTIPLE SCLEROSIS
     Dosage: 0.5 MG, QD
     Route: 048
     Dates: start: 20200211
  2. GILENYA [Suspect]
     Active Substance: FINGOLIMOD HYDROCHLORIDE
     Dosage: 0.5 MG, QOD
     Route: 048

REACTIONS (2)
  - Incorrect dose administered [Unknown]
  - Bradycardia [Recovered/Resolved]

NARRATIVE: CASE EVENT DATE: 20200211
